FAERS Safety Report 9280399 (Version 1)
Quarter: 2013Q2

REPORT INFORMATION
  Report Type: Spontaneous
  Country: US (occurrence: None)
  Receive Date: 20130503
  Receipt Date: 20130503
  Transmission Date: 20140414
  Serious: Yes (Hospitalization)
  Sender: FDA-Public Use
  Company Number: PI-09340

PATIENT
  Sex: Female

DRUGS (2)
  1. CHLORAPREP [Suspect]
     Indication: PREOPERATIVE CARE
     Route: 061
     Dates: start: 20130416
  2. OXYGEN PER NASAL CANNULA [Concomitant]

REACTIONS (2)
  - Burns first degree [None]
  - Burns second degree [None]
